FAERS Safety Report 11154803 (Version 2)
Quarter: 2015Q3

REPORT INFORMATION
  Report Type: Spontaneous
  Country: US (occurrence: None)
  Receive Date: 20150529
  Receipt Date: 20150731
  Transmission Date: 20151125
  Serious: Yes (Other)
  Sender: FDA-Public Use
  Company Number: US-2015VAL000358

PATIENT
  Age: 49 Year
  Sex: Female

DRUGS (4)
  1. COPAXONE [Concomitant]
     Active Substance: GLATIRAMER ACETATE
  2. BACLOFEN (BACLOFEN) [Suspect]
     Active Substance: BACLOFEN
     Indication: MULTIPLE SCLEROSIS
     Route: 048
  3. GILENYA [Suspect]
     Active Substance: FINGOLIMOD HYDROCHLORIDE
     Indication: MULTIPLE SCLEROSIS
     Route: 048
  4. METOPROLOL TARTRATE. [Suspect]
     Active Substance: METOPROLOL TARTRATE
     Indication: VENTRICULAR EXTRASYSTOLES
     Route: 048

REACTIONS (1)
  - Cerebral vasoconstriction [None]

NARRATIVE: CASE EVENT DATE: 20150512
